FAERS Safety Report 11569299 (Version 1)
Quarter: 2015Q3

REPORT INFORMATION
  Report Type: Spontaneous
  Country: AU (occurrence: AU)
  Receive Date: 20150929
  Receipt Date: 20150929
  Transmission Date: 20151125
  Serious: Yes (Death, Other)
  Sender: FDA-Public Use
  Company Number: AU-CELGENE-AUS-2015094046

PATIENT
  Age: 59 Year
  Sex: Female

DRUGS (2)
  1. REVLIMID [Suspect]
     Active Substance: LENALIDOMIDE
     Indication: PLASMA CELL MYELOMA
     Route: 048
  2. ZOLEDRONIC ACID [Suspect]
     Active Substance: ZOLEDRONIC ACID
     Indication: PLASMA CELL MYELOMA
     Route: 065

REACTIONS (5)
  - Herpes zoster disseminated [Unknown]
  - Plasma cell myeloma recurrent [Unknown]
  - Pneumonia [Fatal]
  - Respiratory failure [Fatal]
  - Tubulointerstitial nephritis [Unknown]
